FAERS Safety Report 24025979 (Version 2)
Quarter: 2024Q2

REPORT INFORMATION
  Report Type: Report from Study
  Country: AT (occurrence: AT)
  Receive Date: 20240628
  Receipt Date: 20240628
  Transmission Date: 20240716
  Serious: No
  Sender: FDA-Public Use
  Company Number: AT-ROCHE-3196735

PATIENT
  Age: 53 Year
  Sex: Female
  Weight: 69.0 kg

DRUGS (9)
  1. ALECTINIB [Suspect]
     Active Substance: ALECTINIB
     Indication: Non-small cell lung cancer
     Route: 048
     Dates: start: 20220128
  2. OXAZEPAM [Concomitant]
     Active Substance: OXAZEPAM
     Indication: Depressed mood
     Route: 048
     Dates: start: 20220916
  3. XGEVA [Concomitant]
     Active Substance: DENOSUMAB
     Dosage: NO
     Dates: end: 20220820
  4. CLINDAMYCIN [Concomitant]
     Active Substance: CLINDAMYCIN
     Route: 048
     Dates: start: 20220820, end: 202209
  5. FENTANYL [Concomitant]
     Active Substance: FENTANYL\FENTANYL CITRATE
     Route: 048
     Dates: start: 20220820, end: 202209
  6. MORPHINE [Concomitant]
     Active Substance: MORPHINE
     Route: 048
     Dates: start: 20220820, end: 202209
  7. NOVALGIN (AUSTRIA) [Concomitant]
     Route: 048
     Dates: start: 20220820, end: 202209
  8. DRONABINOL [Concomitant]
     Active Substance: DRONABINOL
     Route: 048
     Dates: start: 20220820, end: 202209
  9. HYDROMORPHONE HYDROCHLORIDE [Concomitant]
     Active Substance: HYDROMORPHONE HYDROCHLORIDE
     Route: 048

REACTIONS (3)
  - Dyspnoea [Recovered/Resolved]
  - Chest pain [Recovered/Resolved]
  - Apicectomy [Recovered/Resolved]

NARRATIVE: CASE EVENT DATE: 20220824
